FAERS Safety Report 12624107 (Version 1)
Quarter: 2016Q3

REPORT INFORMATION
  Report Type: Spontaneous
  Country: US (occurrence: US)
  Receive Date: 20160805
  Receipt Date: 20160805
  Transmission Date: 20161109
  Serious: No
  Sender: FDA-Public Use
  Company Number: US-ASTRAZENECA-2016SE77742

PATIENT
  Sex: Female

DRUGS (1)
  1. PULMICORT FLEXHALER [Suspect]
     Active Substance: BUDESONIDE
     Indication: COUGH
     Dosage: 180 MCG 1X120 DOSES, 2 PUFFS TWICE DAILY
     Route: 055
     Dates: start: 20160301

REACTIONS (4)
  - Malaise [Unknown]
  - Product use issue [Unknown]
  - Off label use [Unknown]
  - Intentional product misuse [Unknown]
